FAERS Safety Report 7362222-X (Version None)
Quarter: 2011Q1

REPORT INFORMATION
  Report Type: 
  Country: None (occurrence: None)
  Receive Date: 20110318
  Receipt Date: 20110316
  Transmission Date: 20110831
  Serious: Yes (Other)
  Sender: FDA-Public Use
  Company Number: BR-PFIZER INC-2011035531

PATIENT
  Sex: Female

DRUGS (4)
  1. CARVEDILOL [Concomitant]
     Dosage: UNK
     Dates: start: 20090101
  2. HIDRION [Concomitant]
     Indication: HYPERTENSION
     Dosage: UNK
     Dates: start: 20090101
  3. ALDACTONE [Concomitant]
     Indication: HYPERTENSION
     Dosage: UNK
     Dates: start: 20090101
  4. LIPITOR [Suspect]
     Dosage: 20 MG, 1X/DAY
     Route: 048
     Dates: start: 20101125, end: 20101101

REACTIONS (1)
  - GASTRITIS [None]
